FAERS Safety Report 20879485 (Version 7)
Quarter: 2023Q1

REPORT INFORMATION
  Report Type: Other
  Country: JP (occurrence: JP)
  Receive Date: 20220526
  Receipt Date: 20230304
  Transmission Date: 20230417
  Serious: Yes (Other)
  Sender: FDA-Public Use
  Company Number: JP-CHUGAI-2022018554

PATIENT
  Age: 64 Year
  Sex: Male
  Weight: 73.7 kg

DRUGS (15)
  1. ATEZOLIZUMAB [Suspect]
     Active Substance: ATEZOLIZUMAB
     Indication: Lung adenocarcinoma
     Dosage: 1200 MILLIGRAM, ONCE/3WEEKS
     Route: 041
     Dates: start: 20210302, end: 20210414
  2. ATEZOLIZUMAB [Suspect]
     Active Substance: ATEZOLIZUMAB
     Dosage: 1200 MILLIGRAM
     Route: 041
     Dates: start: 20210511
  3. ATEZOLIZUMAB [Suspect]
     Active Substance: ATEZOLIZUMAB
     Route: 041
     Dates: start: 20210602, end: 20220119
  4. ATEZOLIZUMAB [Suspect]
     Active Substance: ATEZOLIZUMAB
     Dosage: 1200 MILLIGRAM, ONCE/3WEEKS
     Route: 041
     Dates: start: 20220302, end: 20220323
  5. BEVACIZUMAB [Suspect]
     Active Substance: BEVACIZUMAB
     Indication: Lung adenocarcinoma
     Dosage: 1100 MILLIGRAM, QD
     Route: 041
     Dates: start: 20210302, end: 20210302
  6. BEVACIZUMAB [Suspect]
     Active Substance: BEVACIZUMAB
     Dosage: 980 MILLIGRAM, QD
     Route: 041
     Dates: start: 20210324, end: 20210324
  7. BEVACIZUMAB [Suspect]
     Active Substance: BEVACIZUMAB
     Dosage: 1000 MILLIGRAM, ONCE/4WEEKS
     Route: 041
     Dates: start: 20210414
  8. BEVACIZUMAB [Suspect]
     Active Substance: BEVACIZUMAB
     Dosage: 1000 MILLIGRAM, ONCE/3WEEKS
     Route: 041
     Dates: start: 20210602, end: 20220119
  9. BEVACIZUMAB [Suspect]
     Active Substance: BEVACIZUMAB
     Dosage: 1000 MILLIGRAM, ONCE/3WEEKS
     Route: 041
     Dates: start: 20220302, end: 20220323
  10. CARBOPLATIN [Suspect]
     Active Substance: CARBOPLATIN
     Indication: Lung adenocarcinoma
     Dosage: 700 MILLIGRAM, SINGLE
     Route: 041
     Dates: start: 20210302, end: 20210302
  11. CARBOPLATIN [Suspect]
     Active Substance: CARBOPLATIN
     Dosage: 560 MILLIGRAM, ONCE/3WEEKS
     Route: 041
     Dates: start: 20210324, end: 20210414
  12. CARBOPLATIN [Suspect]
     Active Substance: CARBOPLATIN
     Dosage: 550 MILLIGRAM, SINGLE
     Route: 041
     Dates: start: 20210511, end: 20210511
  13. PACLITAXEL [Suspect]
     Active Substance: PACLITAXEL
     Indication: Lung adenocarcinoma
     Dosage: 370 MILLIGRAM, QD
     Route: 041
     Dates: start: 20210302, end: 20210302
  14. PACLITAXEL [Suspect]
     Active Substance: PACLITAXEL
     Dosage: 280 MILLIGRAM, ONCE/3WEEKS
     Route: 065
     Dates: start: 20210324, end: 20210414
  15. PACLITAXEL [Suspect]
     Active Substance: PACLITAXEL
     Dosage: 280 MILLIGRAM
     Route: 041
     Dates: start: 20210511, end: 20210511

REACTIONS (5)
  - Malaise [Recovered/Resolved]
  - Diarrhoea [Recovering/Resolving]
  - Neutrophil count decreased [Recovered/Resolved]
  - White blood cell count decreased [Recovered/Resolved]
  - Platelet count decreased [Recovered/Resolved]

NARRATIVE: CASE EVENT DATE: 20210305
